FAERS Safety Report 6649178-X (Version None)
Quarter: 2010Q1

REPORT INFORMATION
  Report Type: 
  Country: None (occurrence: None)
  Receive Date: 20100324
  Receipt Date: 20100316
  Transmission Date: 20100710
  Serious: Yes (Other)
  Sender: FDA-Public Use
  Company Number: B0614857A

PATIENT
  Sex: Female

DRUGS (3)
  1. REQUIP [Suspect]
     Indication: PARKINSON'S DISEASE
     Route: 048
     Dates: start: 20080918, end: 20091101
  2. UNKNOWN DRUG [Concomitant]
     Route: 065
  3. COMTAN [Concomitant]
     Route: 048

REACTIONS (7)
  - ALTERED STATE OF CONSCIOUSNESS [None]
  - CONTUSION [None]
  - DIZZINESS [None]
  - HEAD INJURY [None]
  - SLEEP DISORDER [None]
  - SOMNOLENCE [None]
  - SUDDEN ONSET OF SLEEP [None]
